FAERS Safety Report 12603308 (Version 2)
Quarter: 2016Q4

REPORT INFORMATION
  Report Type: Spontaneous
  Country: US (occurrence: US)
  Receive Date: 20160728
  Receipt Date: 20161222
  Transmission Date: 20170207
  Serious: No
  Sender: FDA-Public Use
  Company Number: US-CELGENEUS-USA-2016075450

PATIENT
  Age: 56 Year
  Sex: Male
  Weight: 63.56 kg

DRUGS (2)
  1. OTEZLA [Suspect]
     Active Substance: APREMILAST
     Indication: ROSACEA
     Dosage: 60 MILLIGRAM
     Route: 048
     Dates: start: 20160307
  2. OTEZLA [Suspect]
     Active Substance: APREMILAST
     Indication: DERMATITIS

REACTIONS (1)
  - Gastrointestinal inflammation [Not Recovered/Not Resolved]

NARRATIVE: CASE EVENT DATE: 20160712
